FAERS Safety Report 14671755 (Version 4)
Quarter: 2018Q3

REPORT INFORMATION
  Report Type: Report from Study
  Country: CA (occurrence: CA)
  Receive Date: 20180323
  Receipt Date: 20180921
  Transmission Date: 20181010
  Serious: Yes (Hospitalization, Other)
  Sender: FDA-Public Use
  Company Number: CA-ROCHE-2092440

PATIENT
  Age: 50 Year
  Sex: Male

DRUGS (8)
  1. XELJANZ [Concomitant]
     Active Substance: TOFACITINIB CITRATE
  2. FOLIC ACID. [Concomitant]
     Active Substance: FOLIC ACID
  3. ADVIL [Concomitant]
     Active Substance: IBUPROFEN
     Dosage: FREQUENCY TIME AS REQUIRED.
     Route: 065
  4. VITAMIN D3 [Concomitant]
     Active Substance: CHOLECALCIFEROL
  5. ACTEMRA [Suspect]
     Active Substance: TOCILIZUMAB
     Indication: RHEUMATOID ARTHRITIS
     Dosage: ONGOING
     Route: 042
     Dates: start: 20180122
  6. ARAVA [Concomitant]
     Active Substance: LEFLUNOMIDE
  7. PREDNISONE. [Concomitant]
     Active Substance: PREDNISONE
  8. ORENCIA [Concomitant]
     Active Substance: ABATACEPT

REACTIONS (2)
  - Pulmonary embolism [Unknown]
  - Pneumonia [Not Recovered/Not Resolved]

NARRATIVE: CASE EVENT DATE: 20180227
